FAERS Safety Report 8807979 (Version 2)
Quarter: 2012Q4

REPORT INFORMATION
  Report Type: Report from Study
  Country: CA (occurrence: CA)
  Receive Date: 20120925
  Receipt Date: 20121004
  Transmission Date: 20130627
  Serious: Yes (Hospitalization)
  Sender: FDA-Public Use
  Company Number: CA-BRISTOL-MYERS SQUIBB COMPANY-16978116

PATIENT
  Age: 61 Year
  Sex: Female

DRUGS (3)
  1. IPILIMUMAB [Suspect]
     Indication: METASTATIC MALIGNANT MELANOMA
     Dosage: 1 DF:3 or 10 mg,
No of courses:3
     Route: 042
     Dates: start: 20120727
  2. CARBAMAZEPINE [Concomitant]
     Dates: start: 20120917
  3. PANTOPRAZOLE [Concomitant]
     Dates: start: 20120917

REACTIONS (1)
  - Hypopituitarism [Recovered/Resolved with Sequelae]
